FAERS Safety Report 8217196-6 (Version None)
Quarter: 2012Q1

REPORT INFORMATION
  Report Type: 
  Country: None (occurrence: None)
  Receive Date: 20120319
  Receipt Date: 20120309
  Transmission Date: 20120608
  Serious: Yes (Hospitalization)
  Sender: FDA-Public Use
  Company Number: MX-BRISTOL-MYERS SQUIBB COMPANY-16447542

PATIENT
  Age: 75 Year
  Sex: Female

DRUGS (1)
  1. OHRENCIA [Suspect]
     Indication: RHEUMATOID ARTHRITIS
     Dosage: RECEIVES A DOSE OF 3 VIALS
     Dates: start: 20120210

REACTIONS (2)
  - BRONCHITIS [None]
  - GASTROOESOPHAGEAL REFLUX DISEASE [None]
